FAERS Safety Report 18081475 (Version 2)
Quarter: 2020Q3

REPORT INFORMATION
  Report Type: Report from Study
  Country: RO (occurrence: RO)
  Receive Date: 20200728
  Receipt Date: 20200925
  Transmission Date: 20201103
  Serious: Yes (Other)
  Sender: FDA-Public Use
  Company Number: RO-GILEAD-2020-0485355

PATIENT
  Age: 63 Year
  Sex: Female

DRUGS (8)
  1. RYTMONORM [Concomitant]
     Active Substance: PROPAFENONE
     Dosage: UNK
  2. SIFITAN [Concomitant]
     Dosage: UNK
  3. FEVARIN [Concomitant]
     Active Substance: FLUVOXAMINE MALEATE
     Dosage: UNK
  4. VIZIK [Concomitant]
     Dosage: UNK
  5. INDAPAMID [Concomitant]
     Active Substance: INDAPAMIDE
     Dosage: UNK
  6. EUTHYROX [Concomitant]
     Active Substance: LEVOTHYROXINE SODIUM
     Dosage: UNK
  7. LEDIPASVIR/SOFOSBUVIR [Suspect]
     Active Substance: LEDIPASVIR\SOFOSBUVIR
     Indication: CHRONIC HEPATITIS C
     Dosage: 1 DOSAGE FORM, QD
     Route: 048
     Dates: start: 20200722, end: 20200916
  8. ANXIAR [Concomitant]
     Active Substance: LORAZEPAM
     Dosage: UNK

REACTIONS (3)
  - Renal neoplasm [Unknown]
  - Product prescribing issue [Recovered/Resolved]
  - Vomiting [Recovered/Resolved]

NARRATIVE: CASE EVENT DATE: 20200722
